FAERS Safety Report 8463941-4 (Version None)
Quarter: 2012Q2

REPORT INFORMATION
  Report Type: 
  Country: None (occurrence: None)
  Receive Date: 20120625
  Receipt Date: 20120620
  Transmission Date: 20120825
  Serious: Yes (Other)
  Sender: FDA-Public Use
  Company Number: PHHY2012EG053389

PATIENT
  Age: 52 Year
  Sex: Female

DRUGS (3)
  1. MOSTACORTINE [Concomitant]
     Dosage: 10 MG, UNK
  2. ZOLEDRONOC ACID [Suspect]
     Indication: OSTEOPOROSIS
     Dosage: 5 MG, ONCE YEARLY
     Route: 042
     Dates: start: 20120609
  3. METHOTREXATE [Concomitant]
     Dosage: 175 MG/WEEK

REACTIONS (6)
  - RED BLOOD CELL SEDIMENTATION RATE INCREASED [None]
  - PALLOR [None]
  - PYREXIA [None]
  - ARTHRALGIA [None]
  - C-REACTIVE PROTEIN INCREASED [None]
  - BONE PAIN [None]
